FAERS Safety Report 25752654 (Version 1)
Quarter: 2025Q3

REPORT INFORMATION
  Report Type: Other
  Country: US (occurrence: US)
  Receive Date: 20250902
  Receipt Date: 20250902
  Transmission Date: 20251020
  Serious: Yes (Other)
  Sender: MADRIGAL PHARMACEUTICALS
  Company Number: US-MADRIGAL PHARMACEUTICALS, INC-2025USREZ09888

PATIENT

DRUGS (15)
  1. REZDIFFRA [Suspect]
     Active Substance: RESMETIROM
     Indication: Metabolic dysfunction-associated steatohepatitis
     Dosage: 60 MILLIGRAM, QD
     Route: 048
  2. ASPIRIN [Concomitant]
     Active Substance: ASPIRIN
  3. TRULICITY [Concomitant]
     Active Substance: DULAGLUTIDE
  4. TYLENOL [Concomitant]
     Active Substance: ACETAMINOPHEN
  5. FAMOTIDINE [Concomitant]
     Active Substance: FAMOTIDINE
  6. OMEPRAZOLE [Concomitant]
     Active Substance: OMEPRAZOLE
  7. MYCOPHENOLIC ACID [Concomitant]
     Active Substance: MYCOPHENOLIC ACID
  8. CLOBETASOL PROPIONATE [Concomitant]
     Active Substance: CLOBETASOL PROPIONATE
  9. OFEV [Concomitant]
     Active Substance: NINTEDANIB
  10. GLIPIZIDE [Concomitant]
     Active Substance: GLIPIZIDE
  11. CLOPIDOGREL [Concomitant]
     Active Substance: CLOPIDOGREL BISULFATE
  12. METOPROLOL TARTRATE [Concomitant]
     Active Substance: METOPROLOL TARTRATE
  13. ATORVASTATIN [Concomitant]
     Active Substance: ATORVASTATIN
  14. FERROUS SULFATE [Concomitant]
     Active Substance: FERROUS SULFATE
  15. METFORMIN HYDROCHLORIDE [Concomitant]
     Active Substance: METFORMIN HYDROCHLORIDE

REACTIONS (1)
  - Hepatic cirrhosis [Unknown]

NARRATIVE: CASE EVENT DATE: 20250101
